FAERS Safety Report 4410846-1 (Version None)
Quarter: 2004Q3

REPORT INFORMATION
  Report Type: 
  Country: None (occurrence: None)
  Receive Date: 20040726
  Receipt Date: 20040708
  Transmission Date: 20050211
  Serious: Yes (Other)
  Sender: FDA-Public Use
  Company Number: A03200402226

PATIENT
  Age: 75 Year
  Sex: Female
  Weight: 63.05 kg

DRUGS (3)
  1. PLAVIX [Suspect]
     Indication: MYOCARDIAL INFARCTION
     Dosage: 75 MG QD - ORAL
     Route: 048
     Dates: start: 20030620, end: 20040414
  2. PLAVIX [Suspect]
     Indication: STENT PLACEMENT
     Dosage: 75 MG QD - ORAL
     Route: 048
     Dates: start: 20030620, end: 20040414
  3. ASPIRIN [Concomitant]

REACTIONS (2)
  - CAPILLARY DISORDER [None]
  - MACULAR DEGENERATION [None]
